FAERS Safety Report 12062619 (Version 9)
Quarter: 2025Q4

REPORT INFORMATION
  Report Type: Spontaneous
  Country: CA (occurrence: CA)
  Receive Date: 20160210
  Receipt Date: 20251203
  Transmission Date: 20260118
  Serious: Yes (Other)
  Sender: BAUSCH AND LOMB
  Company Number: CA-MLMSERVICE-20160201-0137883-1

PATIENT
  Age: 70 Year
  Sex: Female

DRUGS (30)
  1. METFORMIN [Suspect]
     Active Substance: METFORMIN HYDROCHLORIDE
     Indication: Product used for unknown indication
     Route: 065
  2. RAMIPRIL [Suspect]
     Active Substance: RAMIPRIL
     Indication: Product used for unknown indication
     Route: 065
  3. ATORVASTATIN [Suspect]
     Active Substance: ATORVASTATIN
     Indication: Product used for unknown indication
     Route: 065
  4. MORPHINE [Suspect]
     Active Substance: MORPHINE
     Indication: Product used for unknown indication
     Dosage: AVERAGE MORPHINE EQUIVALENT DAILY DOSE (MEDD) WAS 25MG.
     Route: 065
  5. MORPHINE [Suspect]
     Active Substance: MORPHINE
     Dosage: DECREASED AVERAGE MEDD OF 10 MG
     Route: 065
  6. RANITIDINE [Suspect]
     Active Substance: RANITIDINE
     Indication: Product used for unknown indication
     Route: 065
  7. NAPROXEN [Suspect]
     Active Substance: NAPROXEN
     Indication: Product used for unknown indication
     Route: 065
  8. CELECOXIB [Suspect]
     Active Substance: CELECOXIB
     Indication: Product used for unknown indication
     Route: 065
  9. PRILOCAINE [Suspect]
     Active Substance: PRILOCAINE
     Indication: Product used for unknown indication
     Route: 065
  10. GABAPENTIN [Suspect]
     Active Substance: GABAPENTIN
     Indication: Product used for unknown indication
     Route: 065
  11. EZETIMIBE [Suspect]
     Active Substance: EZETIMIBE
     Indication: Product used for unknown indication
     Route: 065
  12. MOXIFLOXACIN [Suspect]
     Active Substance: MOXIFLOXACIN
     Indication: Product used for unknown indication
     Route: 065
  13. TOPIRAMATE [Suspect]
     Active Substance: TOPIRAMATE
     Indication: Product used for unknown indication
     Route: 065
  14. ROFECOXIB [Suspect]
     Active Substance: ROFECOXIB
     Indication: Product used for unknown indication
     Route: 065
  15. MELOXICAM [Suspect]
     Active Substance: MELOXICAM
     Indication: Product used for unknown indication
     Route: 065
  16. GATIFLOXACIN [Suspect]
     Active Substance: GATIFLOXACIN
     Indication: Product used for unknown indication
     Route: 065
  17. GLYBURIDE [Suspect]
     Active Substance: GLYBURIDE
     Indication: Product used for unknown indication
     Route: 065
  18. GLICLAZIDE [Suspect]
     Active Substance: GLICLAZIDE
     Indication: Product used for unknown indication
     Route: 065
  19. CODEINE [Suspect]
     Active Substance: CODEINE
     Indication: Product used for unknown indication
     Route: 065
  20. GLYBURIDE [Suspect]
     Active Substance: GLYBURIDE
     Indication: Product used for unknown indication
     Route: 065
  21. PENICILLIN [Suspect]
     Active Substance: PENICILLIN
     Indication: Product used for unknown indication
     Route: 065
  22. GEMCITABINE [Concomitant]
     Active Substance: GEMCITABINE
     Indication: Adenocarcinoma pancreas
     Dosage: CYCLICAL; WEEKLY THREE OUT OF FOUR WEEKS FOR EIGHT CYCLES.
  23. ESOMEPRAZOLE [Concomitant]
     Active Substance: ESOMEPRAZOLE
     Indication: Product used for unknown indication
     Route: 048
  24. IRBESARTAN [Concomitant]
     Active Substance: IRBESARTAN
     Indication: Product used for unknown indication
     Route: 048
  25. INSULIN ASPART [Concomitant]
     Active Substance: INSULIN ASPART
     Indication: Product used for unknown indication
     Dosage: SLIDING SCALE WITH EACH MEAL
  26. HYDROMORPHONE [Concomitant]
     Active Substance: HYDROMORPHONE
     Indication: Pain
     Dosage: AS NEEDED
     Route: 048
  27. HYDROMORPHONE [Concomitant]
     Active Substance: HYDROMORPHONE
     Dosage: CONTROLLED RELEASE
     Route: 048
  28. INSULIN GLARGINE [Concomitant]
     Active Substance: INSULIN GLARGINE
     Indication: Product used for unknown indication
     Dosage: DAILY AT BED TIME
  29. FENOFIBRATE [Concomitant]
     Active Substance: FENOFIBRATE
     Indication: Product used for unknown indication
     Route: 048
  30. PANCRELIPASE [Concomitant]
     Active Substance: PANCRELIPASE
     Indication: Product used for unknown indication
     Dosage: WITH MEALS
     Route: 048

REACTIONS (2)
  - Anaphylactic reaction [Unknown]
  - Drug intolerance [Unknown]
